FAERS Safety Report 9148283 (Version 1)
Quarter: 2013Q1

REPORT INFORMATION
  Report Type: Spontaneous
  Country: US (occurrence: None)
  Receive Date: 20130228
  Receipt Date: 20130228
  Transmission Date: 20140127
  Serious: Yes (Other)
  Sender: FDA-Public Use
  Company Number: None

PATIENT
  Sex: Female
  Weight: 45.36 kg

DRUGS (1)
  1. KUVAN [Suspect]
     Indication: PHENYLKETONURIA
     Route: 048

REACTIONS (6)
  - Dyspnoea [None]
  - Ulcer [None]
  - Hiatus hernia [None]
  - Gastritis [None]
  - Gastrooesophageal reflux disease [None]
  - Odynophagia [None]
